FAERS Safety Report 13081537 (Version 1)
Quarter: 2017Q1

REPORT INFORMATION
  Report Type: Spontaneous
  Country: US (occurrence: US)
  Receive Date: 20170103
  Receipt Date: 20170103
  Transmission Date: 20170428
  Serious: Yes (Hospitalization, Disabling)
  Sender: FDA-Public Use
  Company Number: None

PATIENT
  Age: 53 Year
  Sex: Female
  Weight: 56.25 kg

DRUGS (4)
  1. VITAMIN C [Concomitant]
     Active Substance: ASCORBIC ACID
  2. LEVOFLOXICAN 500 MG TABLET [Suspect]
     Active Substance: LEVOFLOXACIN
     Indication: BRONCHITIS
     Dosage: ?          QUANTITY:1 TABLET(S);?
     Route: 048
     Dates: start: 20161221, end: 20161223
  3. DAILY MULTI VITAMIN [Concomitant]
  4. AMOX-CLAV [Concomitant]
     Active Substance: AMOXICILLIN\CLAVULANATE POTASSIUM

REACTIONS (10)
  - Arthralgia [None]
  - Gait disturbance [None]
  - Vision blurred [None]
  - Tremor [None]
  - Musculoskeletal pain [None]
  - Hypoaesthesia [None]
  - Pain in extremity [None]
  - Myalgia [None]
  - Tinnitus [None]
  - Joint swelling [None]

NARRATIVE: CASE EVENT DATE: 20161223
